FAERS Safety Report 9554078 (Version 1)
Quarter: 2013Q3

REPORT INFORMATION
  Report Type: Spontaneous
  Country: ES (occurrence: IT)
  Receive Date: 20130925
  Receipt Date: 20130925
  Transmission Date: 20140515
  Serious: Yes (Other)
  Sender: FDA-Public Use
  Company Number: IT-FRI-1000049149

PATIENT
  Age: 81 Year
  Sex: Male
  Weight: 83 kg

DRUGS (3)
  1. ACLIDINIUM [Suspect]
     Dosage: 644 MICROGRAM
     Route: 055
     Dates: start: 20130829
  2. METFORMIN [Concomitant]
     Indication: DIABETES MELLITUS
     Route: 048
  3. REPAGLINIDE [Concomitant]
     Indication: DIABETES MELLITUS
     Route: 048

REACTIONS (1)
  - Urinary retention [Recovered/Resolved]
